FAERS Safety Report 9371025 (Version 1)
Quarter: 2013Q2

REPORT INFORMATION
  Report Type: Spontaneous
  Country: US (occurrence: US)
  Receive Date: 20130627
  Receipt Date: 20130627
  Transmission Date: 20140414
  Serious: Yes (Other)
  Sender: FDA-Public Use
  Company Number: US-PAR PHARMACEUTICAL, INC-2013SCPR005979

PATIENT
  Sex: 0

DRUGS (1)
  1. METOCLOPRAMIDE [Suspect]
     Indication: GASTROOESOPHAGEAL REFLUX DISEASE
     Dosage: 10 MG, QID, BEFORE MEALS AND HS
     Route: 065
     Dates: start: 2003, end: 20090330

REACTIONS (11)
  - Cellulitis [Recovering/Resolving]
  - Tremor [Not Recovered/Not Resolved]
  - Depression [Unknown]
  - Cold sweat [Unknown]
  - Blepharospasm [Not Recovered/Not Resolved]
  - Dysgraphia [Unknown]
  - Social avoidant behaviour [Unknown]
  - Feeling abnormal [Unknown]
  - Anxiety [Unknown]
  - Dizziness [Unknown]
  - Fatigue [Unknown]
